FAERS Safety Report 9737180 (Version 1)
Quarter: 2013Q4

REPORT INFORMATION
  Report Type: Spontaneous
  Country: US (occurrence: US)
  Receive Date: 20131206
  Receipt Date: 20131206
  Transmission Date: 20140711
  Serious: Yes (Death)
  Sender: FDA-Public Use
  Company Number: US-ROCHE-1308113

PATIENT
  Sex: Female

DRUGS (7)
  1. XELODA [Suspect]
     Indication: PRODUCT USED FOR UNKNOWN INDICATION
     Dosage: 2 IN AM, 1 IN THE PM, 14 DAYS ON, 7 DAYS OFF
     Route: 065
     Dates: start: 20130830
  2. ASPIRIN [Concomitant]
  3. SPIRONOLACTONE [Concomitant]
  4. NIASPAN [Concomitant]
  5. LIPITOR [Concomitant]
  6. VICODIN [Concomitant]
  7. PROCHLORPERAZINE [Concomitant]

REACTIONS (1)
  - Death [Fatal]
